FAERS Safety Report 7594539-8 (Version None)
Quarter: 2011Q2

REPORT INFORMATION
  Report Type: 
  Country: None (occurrence: None)
  Receive Date: 20110628
  Receipt Date: 20110619
  Transmission Date: 20111010
  Serious: Yes (Life-Threatening, Hospitalization, Other)
  Sender: FDA-Public Use
  Company Number: 201110698

PATIENT
  Age: 73 Year
  Sex: Male

DRUGS (1)
  1. LIORESAL [Suspect]
     Indication: MUSCLE SPASTICITY
     Dosage: SEE B5

REACTIONS (12)
  - PUMP RESERVOIR ISSUE [None]
  - INCORRECT DOSE ADMINISTERED BY DEVICE [None]
  - DEVICE POWER SOURCE ISSUE [None]
  - DEVICE CONNECTION ISSUE [None]
  - OVERDOSE [None]
  - COMA [None]
  - LETHARGY [None]
  - IMPLANT SITE EFFUSION [None]
  - DELIRIUM [None]
  - HEADACHE [None]
  - CONFUSIONAL STATE [None]
  - DEVICE INEFFECTIVE [None]
